FAERS Safety Report 6671089-4 (Version None)
Quarter: 2010Q2

REPORT INFORMATION
  Report Type: 
  Country: None (occurrence: None)
  Receive Date: 20100407
  Receipt Date: 20090120
  Transmission Date: 20101027
  Serious: No
  Sender: FDA-Public Use
  Company Number: PHHY2009US61144

PATIENT
  Sex: Female

DRUGS (8)
  1. TASIGNA [Suspect]
     Indication: CHRONIC MYELOID LEUKAEMIA
     Dosage: 400 MG, BID
     Route: 048
     Dates: start: 20080612
  2. NEXIUM [Concomitant]
  3. VITAMIN D [Concomitant]
  4. CALCIUM [Concomitant]
  5. HYDROXYZINE [Concomitant]
  6. PLAVIX [Concomitant]
  7. TOPROL-XL [Concomitant]
  8. NYSTATIN [Concomitant]

REACTIONS (1)
  - DRUG ADMINISTRATION ERROR [None]
